FAERS Safety Report 7360243-4 (Version None)
Quarter: 2011Q1

REPORT INFORMATION
  Report Type: 
  Country: None (occurrence: None)
  Receive Date: 20110310
  Receipt Date: 20110224
  Transmission Date: 20110831
  Serious: Yes (Death)
  Sender: FDA-Public Use
  Company Number: UTC-005340

PATIENT
  Age: 69 Year
  Sex: Female
  Weight: 65.9 kg

DRUGS (3)
  1. REMODULIN [Suspect]
     Dosage: 57.6 UG/KG (0.04 UG/KG, 1 IN 1
     Dates: start: 20080206
  2. DIURETICS (DIURETICS) [Concomitant]
  3. REVATIO [Concomitant]

REACTIONS (1)
  - DEATH [None]
